FAERS Safety Report 6565597-4 (Version None)
Quarter: 2010Q1

REPORT INFORMATION
  Report Type: 
  Country: None (occurrence: None)
  Receive Date: 20100201
  Receipt Date: 20100122
  Transmission Date: 20100710
  Serious: Yes (Hospitalization, Other)
  Sender: FDA-Public Use
  Company Number: FR-RB-001308-10

PATIENT
  Age: 28 Year
  Sex: Female

DRUGS (4)
  1. SUBUTEX [Suspect]
     Dosage: UNIT DOSE UNKNOWN, ALL OTHER DOSAGE DETAILS PROVIDED
     Route: 042
     Dates: start: 19980101, end: 20060201
  2. LEXOMIL [Concomitant]
     Indication: DRUG USE FOR UNKNOWN INDICATION
     Dosage: UNKNOWN DOSING DETAILS
     Route: 065
     Dates: start: 19970101, end: 20060201
  3. CODEINE SUL TAB [Concomitant]
     Indication: DRUG USE FOR UNKNOWN INDICATION
     Dosage: UNKNOWN DOSING DETAILS
     Route: 065
  4. BENZODIAZEPIN [Concomitant]
     Indication: DRUG USE FOR UNKNOWN INDICATION
     Dosage: UNKNOWN DOSING DETAILS
     Route: 065

REACTIONS (5)
  - ABSCESS LIMB [None]
  - ENDOCARDITIS [None]
  - INCORRECT ROUTE OF DRUG ADMINISTRATION [None]
  - SEPSIS [None]
  - SUBSTANCE ABUSE [None]
